FAERS Safety Report 15517288 (Version 1)
Quarter: 2018Q4

REPORT INFORMATION
  Report Type: Spontaneous
  Country: US (occurrence: US)
  Receive Date: 20181011
  Receipt Date: 20181011
  Transmission Date: 20190205
  Serious: No
  Sender: FDA-Public Use
  Company Number: None

PATIENT
  Age: 65 Year
  Sex: Male

DRUGS (2)
  1. HUMIRA [Suspect]
     Active Substance: ADALIMUMAB
     Indication: MYOCARDITIS
     Route: 058
     Dates: start: 20180101, end: 20180829
  2. ENBREL [Suspect]
     Active Substance: ETANERCEPT

REACTIONS (2)
  - Pain in extremity [None]
  - Joint swelling [None]

NARRATIVE: CASE EVENT DATE: 20180101
